FAERS Safety Report 7372848-5 (Version None)
Quarter: 2011Q1

REPORT INFORMATION
  Report Type: 
  Country: None (occurrence: None)
  Receive Date: 20110324
  Receipt Date: 20110322
  Transmission Date: 20110831
  Serious: Yes (Other)
  Sender: FDA-Public Use
  Company Number: CA-PFIZER INC-2011063224

PATIENT
  Age: 12 Year
  Sex: Male
  Weight: 22.993 kg

DRUGS (4)
  1. ADVIL LIQUI-GELS [Suspect]
     Dosage: UNK
     Route: 048
  2. DEPAKENE [Suspect]
     Dosage: 200 MG, 3X/DAY
     Route: 048
  3. LEVETIRACETAM [Concomitant]
     Dosage: UNK
     Route: 048
  4. CARBAMAZEPINE [Concomitant]
     Dosage: UNK
     Route: 048

REACTIONS (1)
  - PLATELET DISORDER [None]
